FAERS Safety Report 6542495-3 (Version None)
Quarter: 2010Q1

REPORT INFORMATION
  Report Type: 
  Country: None (occurrence: None)
  Receive Date: 20100119
  Receipt Date: 20100115
  Transmission Date: 20100710
  Serious: Yes (Death, Other)
  Sender: FDA-Public Use
  Company Number: BE-ASTRAZENECA-2010SE02103

PATIENT
  Age: 61 Year
  Sex: Female

DRUGS (2)
  1. CRESTOR [Suspect]
     Route: 048
     Dates: start: 20060823, end: 20090101
  2. LIVIAL [Concomitant]
     Indication: MENOPAUSE
     Dates: start: 20000101

REACTIONS (1)
  - COLON CANCER [None]
